FAERS Safety Report 25156162 (Version 1)
Quarter: 2025Q2

REPORT INFORMATION
  Report Type: Report from Study
  Country: CA (occurrence: CA)
  Receive Date: 20250403
  Receipt Date: 20250403
  Transmission Date: 20250716
  Serious: Yes (Death, Other)
  Sender: SANDOZ
  Company Number: CA-SANDOZ-SDZ2025CA020846

PATIENT
  Sex: Female

DRUGS (1)
  1. WYOST [Suspect]
     Active Substance: DENOSUMAB-BBDZ
     Indication: Metastatic bone disease prophylaxis
     Route: 058
     Dates: start: 20241101

REACTIONS (1)
  - Death [Fatal]
